FAERS Safety Report 15651017 (Version 3)
Quarter: 2018Q4

REPORT INFORMATION
  Report Type: Spontaneous
  Country: JP (occurrence: JP)
  Receive Date: 20181123
  Receipt Date: 20181220
  Transmission Date: 20190205
  Serious: Yes (Death, Other)
  Sender: FDA-Public Use
  Company Number: JP-B.I. PHARMACEUTICALS,INC./RIDGEFIELD-2018-NB-006116

PATIENT
  Age: 65 Year
  Sex: Female

DRUGS (1)
  1. GILOTRIF [Suspect]
     Active Substance: AFATINIB
     Indication: LUNG ADENOCARCINOMA
     Route: 065

REACTIONS (7)
  - Decreased appetite [Unknown]
  - Hepatic function abnormal [Unknown]
  - Vomiting [Unknown]
  - Dyspnoea [Unknown]
  - Death [Fatal]
  - Ascites [Unknown]
  - Cardiac failure congestive [Unknown]
